FAERS Safety Report 16476821 (Version 3)
Quarter: 2020Q2

REPORT INFORMATION
  Report Type: Report from Study
  Country: None (occurrence: US)
  Receive Date: 20190626
  Receipt Date: 20200415
  Transmission Date: 20200713
  Serious: Yes (Hospitalization, Other)
  Sender: FDA-Public Use
  Company Number: US-ABBVIE-19K-163-2830481-00

PATIENT
  Sex: Female
  Weight: 79 kg

DRUGS (4)
  1. HUMIRA [Suspect]
     Active Substance: ADALIMUMAB
     Indication: PSORIATIC ARTHROPATHY
     Route: 058
     Dates: start: 2013, end: 2016
  2. HUMIRA [Suspect]
     Active Substance: ADALIMUMAB
     Indication: PSORIASIS
     Route: 058
     Dates: start: 2016
  3. METOPROLOL. [Concomitant]
     Active Substance: METOPROLOL
     Indication: HYPERTENSION
  4. ATORVASTATIN [Concomitant]
     Active Substance: ATORVASTATIN
     Indication: BLOOD CHOLESTEROL INCREASED

REACTIONS (14)
  - Heart rate decreased [Recovered/Resolved]
  - Confusional state [Unknown]
  - Pruritus [Recovering/Resolving]
  - Cerebrovascular accident [Unknown]
  - Back pain [Recovered/Resolved]
  - Blood pressure decreased [Unknown]
  - Localised infection [Recovered/Resolved]
  - Coronary artery bypass [Unknown]
  - Blood pressure systolic increased [Recovering/Resolving]
  - Asthenia [Recovered/Resolved]
  - Amnesia [Recovered/Resolved]
  - Hypokinesia [Unknown]
  - Spinal stenosis [Recovered/Resolved]
  - Coronary artery occlusion [Recovered/Resolved]

NARRATIVE: CASE EVENT DATE: 2016
